FAERS Safety Report 17185257 (Version 1)
Quarter: 2019Q4

REPORT INFORMATION
  Report Type: Spontaneous
  Country: US (occurrence: US)
  Receive Date: 20191220
  Receipt Date: 20191220
  Transmission Date: 20200122
  Serious: No
  Sender: FDA-Public Use
  Company Number: US-THERAPEUTICSMD-2019TMD03906

PATIENT
  Sex: Female
  Weight: 79.37 kg

DRUGS (3)
  1. IMVEXXY [Suspect]
     Active Substance: ESTRADIOL
     Indication: VULVOVAGINAL DRYNESS
     Dosage: 10 ?G, 2X/WEEK BEFORE BED
     Route: 067
     Dates: start: 2019, end: 201909
  2. IMVEXXY [Suspect]
     Active Substance: ESTRADIOL
     Indication: BLADDER PROLAPSE
     Dosage: 10 ?G, 1X/WEEK BEFORE BED
     Route: 067
     Dates: start: 201909, end: 201910
  3. LETROZOLE. [Concomitant]
     Active Substance: LETROZOLE

REACTIONS (3)
  - Off label use [Recovered/Resolved]
  - Escherichia urinary tract infection [Recovering/Resolving]
  - Contraindicated product prescribed [Recovered/Resolved]

NARRATIVE: CASE EVENT DATE: 2019
